FAERS Safety Report 4470184-8 (Version None)
Quarter: 2004Q3

REPORT INFORMATION
  Report Type: 
  Country: None (occurrence: None)
  Receive Date: 20040910
  Receipt Date: 20040804
  Transmission Date: 20050211
  Serious: No
  Sender: FDA-Public Use
  Company Number: 2004227354US

PATIENT
  Age: 80 Year
  Sex: Female

DRUGS (6)
  1. BEXTRA [Suspect]
     Indication: ARTHRALGIA
     Dosage: 10 MG, QD
     Dates: start: 20040802
  2. NEXIUM [Concomitant]
  3. HYDROCHLOROTHIAZIDE [Concomitant]
  4. LISINOPRIL [Concomitant]
  5. PREMARIN [Concomitant]
  6. MULTIVITAMIN [Concomitant]

REACTIONS (3)
  - ABDOMINAL PAIN UPPER [None]
  - HEADACHE [None]
  - SPEECH DISORDER [None]
